FAERS Safety Report 13320642 (Version 1)
Quarter: 2017Q1

REPORT INFORMATION
  Report Type: Spontaneous
  Country: US (occurrence: US)
  Receive Date: 20170309
  Receipt Date: 20170309
  Transmission Date: 20170428
  Serious: No
  Sender: FDA-Public Use
  Company Number: PHEH2017US006868

PATIENT
  Sex: Male

DRUGS (2)
  1. TAFINLAR [Suspect]
     Active Substance: DABRAFENIB MESYLATE
     Indication: PRODUCT USED FOR UNKNOWN INDICATION
     Dosage: 2 DF (150 MG), Q12H
     Route: 048
     Dates: start: 20170127
  2. MEKINIST [Suspect]
     Active Substance: TRAMETINIB DIMETHYL SULFOXIDE
     Indication: PRODUCT USED FOR UNKNOWN INDICATION
     Dosage: 1 DF (2 MG)
     Route: 048
     Dates: start: 20170127

REACTIONS (3)
  - Chills [Unknown]
  - Pyrexia [Unknown]
  - Nausea [Unknown]
